FAERS Safety Report 5341437-6 (Version None)
Quarter: 2007Q2

REPORT INFORMATION
  Report Type: 
  Country: None (occurrence: None)
  Receive Date: 20070530
  Receipt Date: 20070517
  Transmission Date: 20071010
  Serious: Yes (Hospitalization)
  Sender: FDA-Public Use
  Company Number: GXKR2007GB04451

PATIENT
  Age: 48 Year
  Sex: Male
  Weight: 87 kg

DRUGS (3)
  1. OMEPRAZOLE [Suspect]
     Indication: ODYNOPHAGIA
     Dosage: ORAL
     Route: 048
     Dates: start: 20070319, end: 20070321
  2. ATARAX [Suspect]
     Indication: PRURITUS
     Dosage: 25MG, ORAL
     Route: 048
     Dates: start: 20070319, end: 20070321
  3. PENTASA [Concomitant]

REACTIONS (2)
  - COLITIS [None]
  - CONDITION AGGRAVATED [None]
